FAERS Safety Report 7336026-8 (Version None)
Quarter: 2011Q1

REPORT INFORMATION
  Report Type: 
  Country: None (occurrence: None)
  Receive Date: 20110307
  Receipt Date: 20110224
  Transmission Date: 20110831
  Serious: Yes (Hospitalization, Other)
  Sender: FDA-Public Use
  Company Number: US-ELI_LILLY_AND_COMPANY-US201102007137

PATIENT
  Sex: Female

DRUGS (2)
  1. MORPHINE [Concomitant]
  2. FORTEO [Suspect]
     Dosage: 20 UG, DAILY (1/D)

REACTIONS (7)
  - FRACTURE NONUNION [None]
  - SURGERY [None]
  - LOWER LIMB FRACTURE [None]
  - PATHOLOGICAL FRACTURE [None]
  - SOMNOLENCE [None]
  - OFF LABEL USE [None]
  - OSTEOMYELITIS [None]
